FAERS Safety Report 4887758-2 (Version None)
Quarter: 2005Q4

REPORT INFORMATION
  Report Type: 
  Country: None (occurrence: None)
  Receive Date: 20051221
  Receipt Date: 20051109
  Transmission Date: 20060501
  Serious: No
  Sender: FDA-Public Use
  Company Number: US-YAMANOUCHI-YPA20050383

PATIENT
  Sex: Female

DRUGS (6)
  1. VESICARE [Suspect]
     Indication: HYPERTONIC BLADDER
     Dosage: 5 MG PO
     Route: 048
     Dates: start: 20050715, end: 20050101
  2. LIPITOR [Concomitant]
  3. COZAAR [Concomitant]
  4. AMERALIDE [Concomitant]
  5. AMBIEN [Concomitant]
  6. FOSAMAX [Concomitant]

REACTIONS (1)
  - FAECES DISCOLOURED [None]
